FAERS Safety Report 8057051-8 (Version None)
Quarter: 2012Q1

REPORT INFORMATION
  Report Type: 
  Country: None (occurrence: None)
  Receive Date: 20120119
  Receipt Date: 20120113
  Transmission Date: 20120608
  Serious: Yes (Other)
  Sender: FDA-Public Use
  Company Number: DE-ABBOTT-11P-062-0847808-00

PATIENT
  Sex: Female

DRUGS (3)
  1. PREDNISOLONE [Concomitant]
     Indication: PRODUCT USED FOR UNKNOWN INDICATION
  2. HUMIRA [Suspect]
     Indication: RHEUMATOID ARTHRITIS
     Route: 058
     Dates: start: 20070301
  3. ANALGESIC [Concomitant]
     Indication: PRODUCT USED FOR UNKNOWN INDICATION

REACTIONS (16)
  - TOOTHACHE [None]
  - DRY MOUTH [None]
  - ABDOMINAL PAIN [None]
  - SLEEP DISORDER [None]
  - MUSCULOSKELETAL PAIN [None]
  - DRY EYE [None]
  - HYPERHIDROSIS [None]
  - IMPAIRED HEALING [None]
  - PAPILLOMA VIRAL INFECTION [None]
  - CHOLECYSTITIS [None]
  - ORAL HERPES [None]
  - SINUSITIS [None]
  - FUNGAL INFECTION [None]
  - CONTUSION [None]
  - TOOTH INFECTION [None]
  - INFLAMMATION [None]
